FAERS Safety Report 5386606-4 (Version None)
Quarter: 2007Q3

REPORT INFORMATION
  Report Type: 
  Country: None (occurrence: None)
  Receive Date: 20070713
  Receipt Date: 20070705
  Transmission Date: 20080115
  Serious: Yes (Death, Hospitalization)
  Sender: FDA-Public Use
  Company Number: GB-AMGEN-US229178

PATIENT
  Sex: Male

DRUGS (26)
  1. ENBREL [Suspect]
     Indication: ANKYLOSING SPONDYLITIS
     Route: 058
     Dates: start: 20030831, end: 20070417
  2. CITALOPRAM HYDROBROMIDE [Concomitant]
     Indication: DEPRESSION
     Route: 048
  3. ATENOLOL [Concomitant]
     Indication: HYPERTENSION
     Route: 048
  4. FLOXACILLIN SODIUM [Concomitant]
     Dosage: UNKNOWN
  5. RANITIDINE [Concomitant]
     Route: 048
  6. METHOTREXATE [Concomitant]
     Indication: IMMUNOSUPPRESSION
     Dosage: 10 MG WEEKLY
     Route: 048
  7. SIMVASTATIN [Concomitant]
     Indication: HYPERCHOLESTEROLAEMIA
     Route: 048
  8. GLICLAZIDE [Concomitant]
     Indication: DIABETES MELLITUS
     Route: 048
  9. CLOPIDOGREL [Concomitant]
     Indication: PLATELET AGGREGATION INHIBITION
     Route: 048
  10. DOCUSATE [Concomitant]
     Indication: CONSTIPATION
     Route: 048
  11. FOLIC ACID [Concomitant]
     Indication: DRUG TOXICITY PROPHYLAXIS
     Route: 048
  12. FUROSEMIDE [Concomitant]
     Route: 048
  13. GAVISCON [Concomitant]
     Dosage: QDS
  14. GLYCERYL TRINITRATE [Concomitant]
     Dosage: PRN
  15. ENSURE PLUS [Concomitant]
     Dosage: UNKNOWN
  16. LACTULOSE [Concomitant]
     Indication: CONSTIPATION
     Dosage: UNKNOWN
  17. LORMETAZEPAM [Concomitant]
     Indication: SEDATIVE THERAPY
     Route: 048
  18. LORMETAZEPAM [Concomitant]
     Route: 048
  19. MAXOLON [Concomitant]
     Indication: VOMITING
     Route: 048
  20. OMEPRAZOLE [Concomitant]
     Indication: PEPTIC ULCER
     Route: 048
  21. TRAMADOL HCL [Concomitant]
     Indication: ANALGESIA
     Route: 048
  22. SENNA [Concomitant]
     Indication: CONSTIPATION
     Route: 048
  23. STRONTIUM CHLORIDE [Concomitant]
     Route: 048
  24. PARACETAMOL [Concomitant]
     Indication: ANALGESIA
     Dosage: 1G PRN
     Route: 048
  25. PREDNISOLONE [Concomitant]
     Route: 048
  26. RAMIPRIL [Concomitant]
     Route: 048

REACTIONS (9)
  - BLISTER [None]
  - CONCOMITANT DISEASE PROGRESSION [None]
  - FALL [None]
  - HEAD INJURY [None]
  - JOINT STIFFNESS [None]
  - NEUTROPENIC SEPSIS [None]
  - RENAL FAILURE ACUTE [None]
  - SKIN ULCER [None]
  - VOMITING [None]
